FAERS Safety Report 9212850 (Version 1)
Quarter: 2013Q1

REPORT INFORMATION
  Report Type: Spontaneous
  Country: US (occurrence: None)
  Receive Date: 20120820
  Receipt Date: 20120820
  Transmission Date: 20140127
  Serious: No
  Sender: FDA-Public Use
  Company Number: 1000031461

PATIENT
  Age: 55 Year
  Sex: Male

DRUGS (7)
  1. VIIBRYD [Suspect]
     Indication: DEPRESSION
     Route: 048
     Dates: start: 20120427, end: 20120503
  2. VIIBRYD [Suspect]
     Indication: DEPRESSION
     Route: 048
     Dates: start: 20120511, end: 20120601
  3. CRESTOR (ROSUVASTATIN CALCIUM)(ROSUVASTATIN CALCIUM) [Concomitant]
  4. TRAMADOL (TRAMADOL)(TRAMADOL) [Concomitant]
  5. PERCOCET (OXYCODONE, ACETAMINOPHEN)(OXYCODONE,ACETAMINOPHEN) [Concomitant]
  6. COUMADIN(WARFARIN)(WARFARIN) [Concomitant]
  7. LISINOPRIL(LISINOPRIL)(LISINOPRIL) [Concomitant]

REACTIONS (4)
  - Insomnia [None]
  - Diarrhoea [None]
  - Headache [None]
  - Depression [None]
